FAERS Safety Report 9040113 (Version 1)
Quarter: 2013Q1

REPORT INFORMATION
  Report Type: Report from Study
  Country: US (occurrence: US)
  Receive Date: 20130130
  Receipt Date: 20130130
  Transmission Date: 20140127
  Serious: No
  Sender: FDA-Public Use
  Company Number: US-ABBOTT-12P-163-0952205-00

PATIENT
  Age: 47 Year
  Sex: Female

DRUGS (4)
  1. HUMIRA 40 MG/0.8 ML PEN [Suspect]
     Indication: PSORIASIS
     Dosage: TWO PENS
     Dates: start: 20120524, end: 20120524
  2. HUMIRA 40 MG/0.8 ML PEN [Suspect]
     Dosage: ONE PEN
     Dates: start: 20120531, end: 20120531
  3. HCTZ [Concomitant]
     Indication: HYPERTENSION
     Dosage: DAILY
  4. ALLEGRA [Concomitant]
     Indication: HYPERSENSITIVITY
     Dosage: DAILY

REACTIONS (2)
  - Hypersensitivity [Recovered/Resolved]
  - Rash [Recovered/Resolved]
